FAERS Safety Report 6740451-3 (Version None)
Quarter: 2010Q2

REPORT INFORMATION
  Report Type: 
  Country: None (occurrence: None)
  Receive Date: 20100525
  Receipt Date: 20100310
  Transmission Date: 20101027
  Serious: No
  Sender: FDA-Public Use
  Company Number: US-ALLERGAN-1003214US

PATIENT
  Age: 17 Year
  Sex: Male

DRUGS (1)
  1. ACZONE [Suspect]
     Indication: ACNE
     Dosage: UNK
     Dates: start: 20100128, end: 20100215

REACTIONS (3)
  - DRY SKIN [None]
  - ERYTHEMA [None]
  - SKIN CHAPPED [None]
